FAERS Safety Report 24052540 (Version 2)
Quarter: 2024Q3

REPORT INFORMATION
  Report Type: Report from Study
  Country: US (occurrence: US)
  Receive Date: 20240705
  Receipt Date: 20240709
  Transmission Date: 20241017
  Serious: Yes (Death, Hospitalization, Other)
  Sender: ABBVIE
  Company Number: US-ABBVIE-5826143

PATIENT
  Sex: Male
  Weight: 91 kg

DRUGS (3)
  1. VENCLEXTA [Suspect]
     Active Substance: VENETOCLAX
     Indication: Acute myeloid leukaemia recurrent
     Dosage: ON DAYS 1-21 ON  A 28 DAY CYCLE
     Route: 048
  2. VENCLEXTA [Suspect]
     Active Substance: VENETOCLAX
     Indication: Acute myeloid leukaemia recurrent
     Dosage: ON DAYS 1-21 ON  A 28 DAY CYCLE
     Route: 048
     Dates: start: 20240515, end: 20240616
  3. VENCLEXTA [Suspect]
     Active Substance: VENETOCLAX
     Indication: Acute myeloid leukaemia recurrent
     Dosage: ON DAYS 1-21 ON  A 28 DAY CYCLE
     Route: 048
     Dates: start: 202304

REACTIONS (6)
  - Leukaemia recurrent [Fatal]
  - Drug ineffective [Fatal]
  - Off label use [Unknown]
  - Oxygen saturation decreased [Unknown]
  - Dyspnoea [Unknown]
  - Feeling abnormal [Unknown]

NARRATIVE: CASE EVENT DATE: 20240101
